FAERS Safety Report 23368691 (Version 1)
Quarter: 2024Q1

REPORT INFORMATION
  Report Type: Spontaneous
  Country: US (occurrence: US)
  Receive Date: 20240105
  Receipt Date: 20240105
  Transmission Date: 20240409
  Serious: Yes (Life-Threatening, Hospitalization, Other)
  Sender: FDA-Public Use
  Company Number: US-PROCTER+GAMBLE-PH23011661

PATIENT
  Age: 49 Year
  Sex: Female

DRUGS (2)
  1. DIPHENHYDRAMINE HYDROCHLORIDE [Suspect]
     Active Substance: DIPHENHYDRAMINE HYDROCHLORIDE
     Dosage: UNCOUNTED AMOUNT
     Route: 048
  2. DEXMEDETOMIDINE [Suspect]
     Active Substance: DEXMEDETOMIDINE

REACTIONS (12)
  - Cardiac arrest [Unknown]
  - Ventricular fibrillation [Unknown]
  - Torsade de pointes [Unknown]
  - Seizure [Unknown]
  - Electrocardiogram R on T phenomenon [Unknown]
  - Electrocardiogram QT prolonged [Unknown]
  - Sedation [Recovering/Resolving]
  - Agitation [Unknown]
  - Blood pressure diastolic decreased [Unknown]
  - Drug screen positive [Unknown]
  - Accidental exposure to product [Unknown]
  - Exposure via ingestion [Unknown]
